FAERS Safety Report 11592945 (Version 2)
Quarter: 2015Q4

REPORT INFORMATION
  Report Type: Spontaneous
  Country: US (occurrence: US)
  Receive Date: 20151005
  Receipt Date: 20151231
  Transmission Date: 20160304
  Serious: Yes (Life-Threatening, Hospitalization)
  Sender: FDA-Public Use
  Company Number: US-BAYER-2015-433269

PATIENT
  Age: 22 Year
  Sex: Female
  Weight: 53.97 kg

DRUGS (1)
  1. MIRENA [Suspect]
     Active Substance: LEVONORGESTREL
     Indication: CONTRACEPTION
     Dosage: 20 MCG/24HR, CONT
     Route: 015
     Dates: start: 201405, end: 20150308

REACTIONS (19)
  - Sepsis [None]
  - Pyrexia [None]
  - Injury [Not Recovered/Not Resolved]
  - Anxiety [None]
  - Medical device pain [Not Recovered/Not Resolved]
  - Pleural effusion [None]
  - Pelvic pain [Not Recovered/Not Resolved]
  - Emotional distress [None]
  - Uterine perforation [Not Recovered/Not Resolved]
  - Anhedonia [None]
  - Respiratory failure [None]
  - General physical health deterioration [Not Recovered/Not Resolved]
  - Contusion [Not Recovered/Not Resolved]
  - Septic shock [None]
  - Device issue [Not Recovered/Not Resolved]
  - Infection [None]
  - Scar [None]
  - Chills [None]
  - Medical device discomfort [Not Recovered/Not Resolved]

NARRATIVE: CASE EVENT DATE: 201503
